FAERS Safety Report 9215872 (Version 1)
Quarter: 2013Q2

REPORT INFORMATION
  Report Type: Report from Study
  Country: CA (occurrence: CA)
  Receive Date: 20130408
  Receipt Date: 20130408
  Transmission Date: 20140414
  Serious: Yes (Other)
  Sender: FDA-Public Use
  Company Number: CA-JNJFOC-20130401161

PATIENT
  Age: 48 Year
  Sex: Male
  Weight: 71.5 kg

DRUGS (1)
  1. REMICADE [Suspect]
     Indication: ANKYLOSING SPONDYLITIS
     Route: 042
     Dates: start: 20100909

REACTIONS (2)
  - Vascular rupture [Unknown]
  - Venous haemorrhage [Recovered/Resolved]
